FAERS Safety Report 9486051 (Version 1)
Quarter: 2013Q3

REPORT INFORMATION
  Report Type: Spontaneous
  Country: PH (occurrence: None)
  Receive Date: 20130827
  Receipt Date: 20130827
  Transmission Date: 20140515
  Serious: Yes (Death, Life-Threatening, Hospitalization)
  Sender: FDA-Public Use
  Company Number: None

PATIENT
  Age: 73 Year
  Sex: Female
  Weight: 50 kg

DRUGS (1)
  1. OLANZAPINE [Suspect]
     Indication: SCHIZOPHRENIA
     Dosage: 1.5  ONCE DAILY  TAKEN BY MOUTH
     Route: 048
     Dates: start: 20130721, end: 20130812

REACTIONS (3)
  - Blood glucose increased [None]
  - Pneumonia [None]
  - Dehydration [None]
